FAERS Safety Report 9253077 (Version 2)
Quarter: 2013Q2

REPORT INFORMATION
  Report Type: Spontaneous
  Country: US (occurrence: US)
  Receive Date: 20130424
  Receipt Date: 20130626
  Transmission Date: 20140414
  Serious: No
  Sender: FDA-Public Use
  Company Number: US-PFIZER INC-2013127750

PATIENT
  Age: 56 Year
  Sex: Female

DRUGS (3)
  1. LYRICA [Suspect]
     Indication: NEUROPATHY PERIPHERAL
     Dosage: 50 MG, 3X/DAY
     Route: 048
     Dates: start: 20121120, end: 201212
  2. METHADONE [Concomitant]
     Indication: NEURALGIA
     Dosage: 50 MG, Q8H
  3. HYDROCODONE/APAP [Concomitant]
     Indication: PAIN
     Dosage: HYDROCODONE 10 /ACETAMINOPHEN 500 Q6H

REACTIONS (3)
  - Weight increased [Unknown]
  - Feeling abnormal [Unknown]
  - Malaise [Recovered/Resolved]
